FAERS Safety Report 8561715-7 (Version None)
Quarter: 2012Q3

REPORT INFORMATION
  Report Type: 
  Country: None (occurrence: None)
  Receive Date: 20120802
  Receipt Date: 20120724
  Transmission Date: 20120928
  Serious: Yes (Death, Hospitalization)
  Sender: FDA-Public Use
  Company Number: PH-BAXTER-2012BAX012996

PATIENT
  Sex: Female

DRUGS (7)
  1. CALCIUM CARBONATE [Concomitant]
     Route: 065
  2. FERROUS SULFATE TAB [Concomitant]
     Route: 065
  3. NEXIUM [Concomitant]
     Route: 065
  4. CECON [Concomitant]
     Route: 065
  5. DIANEAL PD-2 W/ DEXTROSE 1.5% [Suspect]
     Route: 033
  6. AMLODIPINE [Concomitant]
     Route: 065
  7. METOPROLOL TARTRATE [Concomitant]
     Route: 065

REACTIONS (2)
  - ARRHYTHMIA [None]
  - CHEST DISCOMFORT [None]
